FAERS Safety Report 4853144-4 (Version None)
Quarter: 2005Q4

REPORT INFORMATION
  Report Type: 
  Country: None (occurrence: None)
  Receive Date: 20051212
  Receipt Date: 20051129
  Transmission Date: 20060501
  Serious: Yes (Hospitalization)
  Sender: FDA-Public Use
  Company Number: 2005-DE-05192GD

PATIENT
  Age: 17 Year
  Sex: Male

DRUGS (3)
  1. MORPHINE [Suspect]
     Indication: PAIN IN EXTREMITY
     Dosage: MULTIPLE DOSES
  2. KETOROLAC [Suspect]
     Indication: PAIN IN EXTREMITY
     Dosage: MULTIPLE DOSES
  3. HYDRATION THERAPY [Concomitant]

REACTIONS (12)
  - AMPUTATION [None]
  - CLOSTRIDIAL INFECTION [None]
  - HYPOTENSION [None]
  - MUSCLE NECROSIS [None]
  - NECROTISING FASCIITIS [None]
  - PAIN [None]
  - PALLOR [None]
  - PERIPHERAL COLDNESS [None]
  - RASH [None]
  - SUBCUTANEOUS EMPHYSEMA [None]
  - THERAPY NON-RESPONDER [None]
  - VIRAL MYOSITIS [None]
